FAERS Safety Report 5240641-5 (Version None)
Quarter: 2007Q1

REPORT INFORMATION
  Report Type: 
  Country: None (occurrence: None)
  Receive Date: 20061208
  Receipt Date: 20051025
  Transmission Date: 20070707
  Serious: Yes (Other)
  Sender: FDA-Public Use
  Company Number: 2005UW07979

PATIENT
  Age: 71 Year
  Sex: Male
  Weight: 67.585 kg

DRUGS (9)
  1. CRESTOR [Suspect]
     Indication: BLOOD CHOLESTEROL INCREASED
     Dosage: 10 MG PO
     Route: 048
     Dates: start: 20050301
  2. LEVOXYL [Concomitant]
  3. LISINOPRIL W/HYDROCHLOROTHIAZIDE [Concomitant]
  4. ATENOLOL [Concomitant]
  5. ASACOL [Concomitant]
  6. VITAMIN [Concomitant]
  7. NEXIUM [Concomitant]
  8. PRINIVIL [Concomitant]
  9. PLAVIX [Concomitant]

REACTIONS (6)
  - ASTHENIA [None]
  - CHEST PAIN [None]
  - FAECES DISCOLOURED [None]
  - MELAENA [None]
  - MUSCLE SPASMS [None]
  - PAIN [None]
